FAERS Safety Report 4827626-5 (Version None)
Quarter: 2005Q4

REPORT INFORMATION
  Report Type: 
  Country: None (occurrence: None)
  Receive Date: 20051110
  Receipt Date: 20051025
  Transmission Date: 20060501
  Serious: Yes (Death)
  Sender: FDA-Public Use
  Company Number: 2005BL006297

PATIENT
  Sex: Male

DRUGS (8)
  1. PREDNISOLONE SODIUM PHOSPHATE [Suspect]
  2. COMBIVENT [Suspect]
     Dosage: OROPHARYNGEAL
     Route: 049
     Dates: start: 20040701
  3. DIDRONEL [Suspect]
  4. FUROSEMIDE [Suspect]
  5. SERETIDE [Suspect]
     Dosage: 500 MICROGRAMS
  6. THEOPHYLLINE [Suspect]
     Dosage: OROPHARYNGEAL
     Route: 049
  7. UNPHYLLIN [Suspect]
  8. VENTOLIN [Suspect]
     Dosage: OROPHARYNGEAL
     Route: 049

REACTIONS (1)
  - CHRONIC OBSTRUCTIVE PULMONARY DISEASE [None]
